FAERS Safety Report 24163783 (Version 1)
Quarter: 2024Q3

REPORT INFORMATION
  Report Type: Spontaneous
  Country: IN (occurrence: IN)
  Receive Date: 20240801
  Receipt Date: 20240801
  Transmission Date: 20241016
  Serious: Yes (Other)
  Sender: CMP PHARMA
  Company Number: IN-CMP PHARMA-2024CMP00044

PATIENT
  Age: 54 Year
  Sex: Male

DRUGS (2)
  1. ISONIAZID [Suspect]
     Active Substance: ISONIAZID
     Indication: Extrapulmonary tuberculosis
  2. PYRIDOXINE [Concomitant]
     Active Substance: PYRIDOXINE
     Indication: Extrapulmonary tuberculosis
     Dosage: 25 MG, 1X/DAY

REACTIONS (2)
  - Encephalitis [Recovered/Resolved]
  - Toxicity to various agents [Recovered/Resolved]
